FAERS Safety Report 8555426-1 (Version None)
Quarter: 2012Q3

REPORT INFORMATION
  Report Type: 
  Country: None (occurrence: None)
  Receive Date: 20120731
  Receipt Date: 20110825
  Transmission Date: 20120928
  Serious: Yes (Hospitalization, Other)
  Sender: FDA-Public Use
  Company Number: US-ASTRAZENECA-2011SE12636

PATIENT
  Age: 48 Year
  Sex: Male

DRUGS (13)
  1. CODEINE SULFATE [Concomitant]
     Route: 048
     Dates: start: 20040302
  2. SILDENAFIL CITRATE [Concomitant]
     Dosage: 100 MG 1/2 HOUR BEFORE ACTIVITY
     Route: 048
     Dates: start: 20040303
  3. RISPERIDONE [Concomitant]
     Route: 048
  4. ZOLPIDEM TARTRATE [Concomitant]
     Indication: INSOMNIA
     Dosage: 5 MG 1-2 TABLETS AT BED TIME
     Route: 048
     Dates: start: 20040405
  5. SEROQUEL [Suspect]
     Dosage: 100-400 MG
     Route: 048
     Dates: start: 20040324
  6. TERAZOSIN HYDROCHLORIDE [Concomitant]
     Route: 048
  7. BENZTROPINE MESYLATE [Concomitant]
     Route: 048
  8. BUPROPION HYDROCHLORIDE [Concomitant]
     Route: 048
     Dates: start: 20040405
  9. LORAZEPAM [Concomitant]
     Dosage: 0.5 MG 2 TABLETS AT BEDTIME
     Route: 048
     Dates: start: 20040324
  10. LISINOPRIL [Concomitant]
     Route: 048
  11. DOXEPIN [Concomitant]
     Route: 048
  12. OMEPRAZOLE [Concomitant]
     Indication: GASTRIC PH DECREASED
     Dosage: 2 CAPSULE EVERY DAY
     Route: 048
     Dates: start: 20040303
  13. CITALOPRAM HYDROBROMIDE [Concomitant]
     Route: 048

REACTIONS (5)
  - PANCREATITIS [None]
  - VISION BLURRED [None]
  - DIABETIC COMA [None]
  - DIABETES MELLITUS INADEQUATE CONTROL [None]
  - TYPE 2 DIABETES MELLITUS [None]
